FAERS Safety Report 23570837 (Version 1)
Quarter: 2024Q1

REPORT INFORMATION
  Report Type: Spontaneous
  Country: FR (occurrence: FR)
  Receive Date: 20240227
  Receipt Date: 20240227
  Transmission Date: 20240409
  Serious: Yes (Hospitalization)
  Sender: FDA-Public Use
  Company Number: None

PATIENT
  Age: 77 Year
  Sex: Female
  Weight: 62 kg

DRUGS (7)
  1. ATORVASTATIN [Suspect]
     Active Substance: ATORVASTATIN
     Indication: Vascular disorder prophylaxis
     Dosage: 40.000MG QD
     Route: 048
     Dates: start: 202212, end: 20230303
  2. BISOPROLOL [Suspect]
     Active Substance: BISOPROLOL\BISOPROLOL FUMARATE
     Indication: Cardiac failure
     Dosage: 10.000MG QD
     Route: 048
     Dates: start: 202212
  3. EPLERENONE [Suspect]
     Active Substance: EPLERENONE
     Indication: Cardiac failure
     Dosage: 25.000MG QD
     Route: 048
     Dates: start: 202212, end: 20230303
  4. SELENIUM [Suspect]
     Active Substance: SELENIUM
     Indication: Mineral supplementation
     Dosage: 1.000DF QD
     Route: 048
     Dates: start: 202212, end: 20230303
  5. JARDIANCE [Suspect]
     Active Substance: EMPAGLIFLOZIN
     Indication: Cardiac failure
     Dosage: 1.000DF QD
     Route: 048
     Dates: start: 202212, end: 20230303
  6. RAMIPRIL [Suspect]
     Active Substance: RAMIPRIL
     Indication: Hypertension
     Dosage: 1.250MG QD
     Route: 048
     Dates: start: 202212, end: 20230303
  7. XARELTO [Suspect]
     Active Substance: RIVAROXABAN
     Indication: Thrombosis prophylaxis
     Dosage: 1.000DF QD
     Route: 048
     Dates: start: 202212, end: 20230303

REACTIONS (1)
  - Eosinophilia [Recovered/Resolved]

NARRATIVE: CASE EVENT DATE: 20230201
